FAERS Safety Report 25908044 (Version 1)
Quarter: 2025Q4

REPORT INFORMATION
  Report Type: Report from Study
  Country: US (occurrence: US)
  Receive Date: 20251010
  Receipt Date: 20251010
  Transmission Date: 20260118
  Serious: Yes (Hospitalization, Other)
  Sender: BIOVITRUM
  Company Number: US-BIOVITRUM-2025-US-005302

PATIENT
  Age: 65 Year
  Sex: Female

DRUGS (3)
  1. KINERET [Suspect]
     Active Substance: ANAKINRA
     Indication: Autoinflammatory disease
     Dosage: DAILY
     Route: 058
     Dates: start: 20240404
  2. KINERET [Suspect]
     Active Substance: ANAKINRA
     Dosage: USED 4 SYRINGES PER DAY, 200MG BID, THE PATIENT TRANSFERRED CONTENTS OF 2 SYRINGES INTO 3ML SYRINGES
     Route: 058
     Dates: start: 20240404
  3. ELIQUIS [Suspect]
     Active Substance: APIXABAN
     Indication: Product used for unknown indication

REACTIONS (10)
  - Product dose omission issue [Unknown]
  - Incorrect route of product administration [Recovered/Resolved]
  - Cryptococcosis [Unknown]
  - Liquid product physical issue [Unknown]
  - Haemophagocytic lymphohistiocytosis [Unknown]
  - Cytokine storm [Unknown]
  - Intentional product use issue [Unknown]
  - Deep vein thrombosis [Unknown]
  - Illness [Unknown]
  - Peripheral swelling [Unknown]
